FAERS Safety Report 22208631 (Version 1)
Quarter: 2023Q2

REPORT INFORMATION
  Report Type: Spontaneous
  Country: IT (occurrence: IT)
  Receive Date: 20230413
  Receipt Date: 20230413
  Transmission Date: 20230722
  Serious: Yes (Hospitalization, Other)
  Sender: FDA-Public Use
  Company Number: IT-MYLANLABS-2019M1001621

PATIENT
  Age: 78 Year
  Sex: Female

DRUGS (8)
  1. CHOLECALCIFEROL [Suspect]
     Active Substance: CHOLECALCIFEROL
     Indication: Product used for unknown indication
     Dosage: 50,000 UNITS EVERY MONTH
     Route: 048
  2. CALCIUM CARBONATE [Suspect]
     Active Substance: CALCIUM CARBONATE
     Indication: Product used for unknown indication
     Dosage: 1 GRAM, QD
     Route: 048
  3. RISEDRONATE SODIUM [Suspect]
     Active Substance: RISEDRONATE SODIUM
     Indication: Thyroid cancer
     Dosage: 35 MILLIGRAM, QW
     Route: 065
  4. TERIPARATIDE [Suspect]
     Active Substance: TERIPARATIDE
     Indication: Hormone therapy
     Dosage: 20 MICROGRAM, QD
     Route: 065
  5. RISEDRONIC ACID [Concomitant]
     Active Substance: RISEDRONIC ACID
     Dosage: 35 MILLIGRAM, QW
     Route: 065
  6. CALCIUM [Suspect]
     Active Substance: CALCIUM
     Indication: Thyroid cancer
     Dosage: UNK
     Route: 065
  7. VITAMIN D [Suspect]
     Active Substance: VITAMIN D NOS
     Indication: Thyroid cancer
     Dosage: 50000 DOSAGE FORM, MONTHLY
     Route: 048
  8. RAMIPRIL [Concomitant]
     Active Substance: RAMIPRIL
     Indication: Hypertension
     Dosage: 5 MILLIGRAM, QD
     Route: 065

REACTIONS (6)
  - Hypercalcaemia [Recovering/Resolving]
  - Calciphylaxis [Recovering/Resolving]
  - Metaplasia [Recovering/Resolving]
  - Arterial thrombosis [Recovering/Resolving]
  - Skin ulcer [Recovering/Resolving]
  - Pain [Recovered/Resolved]
